FAERS Safety Report 16966817 (Version 2)
Quarter: 2020Q1

REPORT INFORMATION
  Report Type: Spontaneous
  Country: US (occurrence: US)
  Receive Date: 20191028
  Receipt Date: 20200313
  Transmission Date: 20200409
  Serious: Yes (Other)
  Sender: FDA-Public Use
  Company Number: US-INCYTE CORPORATION-2019IN010401

PATIENT

DRUGS (2)
  1. JAKAFI [Suspect]
     Active Substance: RUXOLITINIB
     Dosage: 10 MILLIGRAM (TWO 5 MG TABLETS), QD
     Route: 048
     Dates: end: 20200127
  2. JAKAFI [Suspect]
     Active Substance: RUXOLITINIB
     Indication: MYELOFIBROSIS
     Dosage: 15 MILLIGRAM, BID
     Route: 048
     Dates: end: 20191014

REACTIONS (5)
  - Platelet count increased [Not Recovered/Not Resolved]
  - Decreased activity [Unknown]
  - Cough [Unknown]
  - Haemoglobin decreased [Not Recovered/Not Resolved]
  - Blood pressure abnormal [Unknown]
